FAERS Safety Report 16797155 (Version 2)
Quarter: 2019Q4

REPORT INFORMATION
  Report Type: Spontaneous
  Country: AR (occurrence: AR)
  Receive Date: 20190912
  Receipt Date: 20191010
  Transmission Date: 20200122
  Serious: Yes (Other)
  Sender: FDA-Public Use
  Company Number: AR-AMGEN-ARGSP2019146907

PATIENT
  Age: 62 Year
  Sex: Female

DRUGS (4)
  1. ENBREL [Suspect]
     Active Substance: ETANERCEPT
     Indication: RHEUMATOID ARTHRITIS
     Dosage: 50 MILLIGRAM, QWK
     Route: 065
     Dates: start: 20171107
  2. MEPREDNISONA [Suspect]
     Active Substance: MEPREDNISONE
     Dosage: 8 MILLIGRAM, QD
     Route: 065
     Dates: start: 2013
  3. POLIRREUMIN [Concomitant]
     Dosage: 1000 MILLIGRAM, QD
     Route: 065
     Dates: start: 2017
  4. SULFASALAZINE. [Concomitant]
     Active Substance: SULFASALAZINE
     Dosage: 800 MILLIGRAM, QD
     Route: 065

REACTIONS (1)
  - Cataract [Not Recovered/Not Resolved]

NARRATIVE: CASE EVENT DATE: 201809
